FAERS Safety Report 8468186-X (Version None)
Quarter: 2012Q2

REPORT INFORMATION
  Report Type: 
  Country: None (occurrence: None)
  Receive Date: 20120626
  Receipt Date: 20120615
  Transmission Date: 20120825
  Serious: Yes (Other)
  Sender: FDA-Public Use
  Company Number: JP-ROCHE-1080935

PATIENT
  Sex: Female

DRUGS (14)
  1. RHEUMATREX [Concomitant]
     Indication: RHEUMATOID ARTHRITIS
     Route: 048
  2. MUCOSTA [Concomitant]
     Indication: PROPHYLAXIS
     Route: 048
  3. PREDNISOLONE [Concomitant]
     Dosage: UNCERTAIN DOSAGE (5MG OR MORE)
     Route: 048
     Dates: start: 20100225
  4. ISONIAZID [Concomitant]
     Indication: ANTIBIOTIC PROPHYLAXIS
     Route: 048
  5. FOLIAMIN [Concomitant]
     Indication: PROPHYLAXIS
     Route: 048
  6. MAGNESIUM OXIDE [Concomitant]
     Indication: PROPHYLAXIS
     Route: 048
  7. ACTEMRA [Suspect]
     Route: 041
     Dates: start: 20091118, end: 20100303
  8. CELEBREX [Concomitant]
     Indication: RHEUMATOID ARTHRITIS
     Route: 048
  9. BREDININ [Concomitant]
     Indication: RHEUMATOID ARTHRITIS
     Route: 048
     Dates: start: 20100225, end: 20100901
  10. LOXONIN [Concomitant]
     Indication: RHEUMATOID ARTHRITIS
     Route: 061
  11. FORSENID [Concomitant]
     Indication: CONSTIPATION
     Route: 048
  12. RISEDRONATE SODIUM [Concomitant]
     Indication: OSTEOPOROSIS
     Route: 048
  13. ACTEMRA [Suspect]
     Indication: RHEUMATOID ARTHRITIS
     Route: 041
     Dates: start: 20090902, end: 20090930
  14. RHEUMATREX [Concomitant]
     Route: 048
     Dates: start: 20100225, end: 20100901

REACTIONS (1)
  - TRAUMATIC FRACTURE [None]
